FAERS Safety Report 6680970-1 (Version None)
Quarter: 2010Q2

REPORT INFORMATION
  Report Type: 
  Country: None (occurrence: None)
  Receive Date: 20100412
  Receipt Date: 20100330
  Transmission Date: 20101027
  Serious: Yes (Hospitalization)
  Sender: FDA-Public Use
  Company Number: 6059257

PATIENT
  Age: 88 Year
  Sex: Female

DRUGS (4)
  1. LEVOTHYROX 25 (LEVOTHYROX SODIUM) [Suspect]
     Indication: HYPOTHYROIDISM
     Dosage: 1 DF (1 DF, 1 IN 1 D) ORAL
     Route: 048
     Dates: start: 20091201
  2. ARICEPT [Suspect]
     Indication: DEMENTIA
     Dosage: 1 DF (1 DF, 1 IN 1 D) ORAL
     Route: 048
     Dates: start: 20100124, end: 20100224
  3. TENORMIN [Suspect]
     Indication: HYPERTENSION
     Dosage: 1 DF (1 DF, 1 IN 1 D) ORAL
     Route: 048
     Dates: end: 20100301
  4. ELISOR (PRAVASTATIN SODIUM) (20 MG) (PRAVASTATIN SODIUM) [Suspect]
     Indication: DRUG USE FOR UNKNOWN INDICATION
     Dosage: 1 DF (1 DF, 1 IN 1 D) ORAL
     Route: 048
     Dates: end: 20100301

REACTIONS (9)
  - ANKLE FRACTURE [None]
  - BRADYCARDIA [None]
  - CONVULSION [None]
  - DEMENTIA [None]
  - DISORIENTATION [None]
  - FALL [None]
  - HEAD INJURY [None]
  - LOSS OF CONSCIOUSNESS [None]
  - MOBILITY DECREASED [None]
